FAERS Safety Report 26069841 (Version 1)
Quarter: 2025Q4

REPORT INFORMATION
  Report Type: Spontaneous
  Country: US (occurrence: US)
  Receive Date: 20251120
  Receipt Date: 20251120
  Transmission Date: 20260118
  Serious: No
  Sender: CATALYST PHARMA
  Company Number: US-CATALYST PHARMACEUTICALS-US-CATA-25-01380

PATIENT
  Age: 2 Year
  Sex: Male
  Weight: 11.3 kg

DRUGS (2)
  1. AGAMREE [Suspect]
     Active Substance: VAMOROLONE
     Indication: Duchenne muscular dystrophy
     Dosage: 1.7 ML A DAY
     Route: 048
     Dates: start: 20250828
  2. CHILDREN^S MULTIVITAMIN W/IRON [Concomitant]
     Indication: Hypovitaminosis
     Dosage: ONE TABLET DAILY
     Route: 065

REACTIONS (1)
  - Rhinorrhoea [Not Recovered/Not Resolved]

NARRATIVE: CASE EVENT DATE: 20250910
